FAERS Safety Report 9792886 (Version 1)
Quarter: 2014Q1

REPORT INFORMATION
  Report Type: Spontaneous
  Country: US (occurrence: US)
  Receive Date: 20140102
  Receipt Date: 20140102
  Transmission Date: 20141002
  Serious: No
  Sender: FDA-Public Use
  Company Number: US-SANOFI-AVENTIS-2013SA048149

PATIENT
  Age: 62 Year
  Sex: Female
  Weight: 79.38 kg

DRUGS (6)
  1. AUBAGIO [Suspect]
     Indication: MULTIPLE SCLEROSIS
     Route: 048
     Dates: start: 20130419, end: 20130612
  2. ACTONEL [Concomitant]
     Indication: BONE DISORDER
  3. ASPIRIN [Concomitant]
     Indication: CARDIAC DISORDER
  4. OMEPRAZOLE [Concomitant]
     Indication: DYSPEPSIA
  5. ACETAMINOPHEN PM [Concomitant]
     Indication: PAIN
  6. FISH OIL [Concomitant]
     Indication: ROUTINE HEALTH MAINTENANCE

REACTIONS (5)
  - Abdominal pain upper [Recovered/Resolved]
  - Faeces soft [Not Recovered/Not Resolved]
  - Alopecia [Not Recovered/Not Resolved]
  - Paraesthesia [Not Recovered/Not Resolved]
  - Drug dose omission [Unknown]
